FAERS Safety Report 6170391-2 (Version None)
Quarter: 2009Q2

REPORT INFORMATION
  Report Type: 
  Country: None (occurrence: None)
  Receive Date: 20090428
  Receipt Date: 20090416
  Transmission Date: 20091009
  Serious: Yes (Other)
  Sender: FDA-Public Use
  Company Number: US-PFIZER INC-2009188994

PATIENT
  Sex: Female
  Weight: 70.295 kg

DRUGS (4)
  1. CHANTIX [Suspect]
     Indication: SMOKING CESSATION THERAPY
     Dosage: 0.5 MG, 1X/DAY
     Dates: start: 20090301, end: 20090301
  2. PAXIL [Concomitant]
     Dosage: UNK
  3. SULFASALAZINE [Concomitant]
     Dosage: UNK
  4. PRILOSEC [Concomitant]
     Dosage: UNK

REACTIONS (7)
  - DISTURBANCE IN ATTENTION [None]
  - FEELING ABNORMAL [None]
  - FEELING JITTERY [None]
  - HALLUCINATION, TACTILE [None]
  - INSOMNIA [None]
  - NERVOUSNESS [None]
  - PSYCHOTIC DISORDER [None]
